FAERS Safety Report 9674808 (Version 1)
Quarter: 2013Q4

REPORT INFORMATION
  Report Type: Spontaneous
  Country: US (occurrence: None)
  Receive Date: 20131106
  Receipt Date: 20131106
  Transmission Date: 20140711
  Serious: Yes (Life-Threatening, Hospitalization)
  Sender: FDA-Public Use
  Company Number: None

PATIENT
  Age: 56 None
  Sex: Male
  Weight: 97.98 kg

DRUGS (2)
  1. AZITHROMYCIN [Suspect]
     Indication: SINUSITIS
     Dosage: EACH DAY FOR 6 DAYS
     Route: 048
     Dates: start: 20130210, end: 20130216
  2. AZITHROMYCIN [Suspect]
     Indication: EAR INFECTION
     Dosage: EACH DAY FOR 6 DAYS
     Route: 048
     Dates: start: 20130210, end: 20130216

REACTIONS (1)
  - Atrial fibrillation [None]
